FAERS Safety Report 4531977-1 (Version None)
Quarter: 2004Q4

REPORT INFORMATION
  Report Type: 
  Country: None (occurrence: None)
  Receive Date: 20041217
  Receipt Date: 20041014
  Transmission Date: 20050328
  Serious: Yes (Hospitalization)
  Sender: FDA-Public Use
  Company Number: 2004-DE-05140DE

PATIENT
  Age: 73 Year
  Sex: Male

DRUGS (4)
  1. SPIRIVA [Suspect]
     Indication: CHRONIC OBSTRUCTIVE AIRWAYS DISEASE
     Dosage: 1 ANZ (NR, 1 IN 1 D); IH
     Route: 055
     Dates: start: 20020617, end: 20020710
  2. SPIRIVA [Suspect]
     Indication: EMPHYSEMA
     Dosage: 1 ANZ (NR, 1 IN 1 D); IH
     Route: 055
     Dates: start: 20020617, end: 20020710
  3. THEOPHYLLINE [Concomitant]
  4. ATROVENT [Concomitant]

REACTIONS (2)
  - CHRONIC OBSTRUCTIVE AIRWAYS DISEASE EXACERBATED [None]
  - RESPIRATORY TRACT INFECTION [None]
